FAERS Safety Report 7889047 (Version 4)
Quarter: 2012Q4

REPORT INFORMATION
  Report Type: Report from Study
  Country: DE (occurrence: DE)
  Receive Date: 20110407
  Receipt Date: 20121017
  Transmission Date: 20130627
  Serious: Yes (Hospitalization)
  Sender: FDA-Public Use
  Company Number: PHHO2011DE05359

PATIENT
  Age: 77 Year
  Sex: Female

DRUGS (7)
  1. MYFORTIC [Suspect]
     Indication: RENAL TRANSPLANT
     Dates: start: 20110130
  2. MYFORTIC [Suspect]
     Dosage: 2160 ug, UNK
  3. SANDIMMUN [Suspect]
     Indication: RENAL TRANSPLANT
     Dosage: UNK
     Dates: start: 20110130
  4. SANDIMMUN [Suspect]
     Dosage: 220 ug, UNK
  5. SIMULECT / CHI 621A / SDZ CHI 621 [Suspect]
     Indication: RENAL TRANSPLANT
     Dosage: 20 mg, ONCE/SINGLE
     Route: 042
     Dates: start: 20110130, end: 20110130
  6. SIMULECT / CHI 621A / SDZ CHI 621 [Suspect]
     Dosage: 20 mg, ONCE/SINGLE
     Route: 042
     Dates: start: 20110203, end: 20110203
  7. NO TREATMENT RECEIVED [Suspect]
     Indication: RENAL TRANSPLANT
     Route: 048

REACTIONS (3)
  - C-reactive protein increased [Recovered/Resolved]
  - Blood creatinine increased [Recovered/Resolved]
  - Femoral neck fracture [Unknown]
